FAERS Safety Report 7776372-7 (Version None)
Quarter: 2011Q3

REPORT INFORMATION
  Report Type: 
  Country: None (occurrence: None)
  Receive Date: 20110926
  Receipt Date: 20110915
  Transmission Date: 20111222
  Serious: Yes (Other)
  Sender: FDA-Public Use
  Company Number: US-JNJFOC-20110907229

PATIENT
  Sex: Female
  Weight: 115.67 kg

DRUGS (2)
  1. LEVOTHYROXINE SODIUM [Concomitant]
     Indication: THYROID DISORDER
     Route: 048
  2. DURAGESIC-100 [Suspect]
     Indication: PAIN
     Route: 062
     Dates: start: 20080101

REACTIONS (2)
  - SCLERODERMA [None]
  - WRONG TECHNIQUE IN DRUG USAGE PROCESS [None]
